FAERS Safety Report 15980346 (Version 1)
Quarter: 2019Q1

REPORT INFORMATION
  Report Type: Spontaneous
  Country: US (occurrence: US)
  Receive Date: 20190125
  Receipt Date: 20190125
  Transmission Date: 20190418
  Serious: Yes (Hospitalization)
  Sender: FDA-Public Use
  Company Number: None

PATIENT
  Age: 39 Year
  Sex: Female
  Weight: 79.2 kg

DRUGS (1)
  1. HUMIRA [Suspect]
     Active Substance: ADALIMUMAB
     Dosage: ?          QUANTITY:2 INJECTION(S);?
     Route: 061
     Dates: start: 20190124, end: 20190125

REACTIONS (7)
  - Asthenia [None]
  - Dysphagia [None]
  - Dysstasia [None]
  - Swelling face [None]
  - Coordination abnormal [None]
  - Fatigue [None]
  - Gait disturbance [None]

NARRATIVE: CASE EVENT DATE: 20190124
